FAERS Safety Report 7900905-0 (Version None)
Quarter: 2011Q4

REPORT INFORMATION
  Report Type: 
  Country: None (occurrence: None)
  Receive Date: 20111108
  Receipt Date: 20111025
  Transmission Date: 20120403
  Serious: Yes (Hospitalization, Other)
  Sender: FDA-Public Use
  Company Number: US-ELI_LILLY_AND_COMPANY-US201110006960

PATIENT
  Sex: Female

DRUGS (2)
  1. CYMBALTA [Suspect]
     Indication: DEPRESSION
     Dosage: 60 MG, UNK
  2. ANALGESICS [Concomitant]

REACTIONS (6)
  - ACCIDENT [None]
  - NAUSEA [None]
  - NEUROPATHY PERIPHERAL [None]
  - HEPATIC ENZYME INCREASED [None]
  - LOWER LIMB FRACTURE [None]
  - FEELING ABNORMAL [None]
